FAERS Safety Report 7518225-5 (Version None)
Quarter: 2011Q2

REPORT INFORMATION
  Report Type: 
  Country: None (occurrence: None)
  Receive Date: 20110531
  Receipt Date: 20110531
  Transmission Date: 20111010
  Serious: Yes (Death)
  Sender: FDA-Public Use
  Company Number: None

PATIENT
  Age: 45 Year
  Sex: Female

DRUGS (9)
  1. REVLIMID [Suspect]
     Indication: ACUTE MYELOID LEUKAEMIA
     Dosage: 15MG DAILY ORALLY
     Route: 048
     Dates: start: 20110201, end: 20110201
  2. GLEEVEC [Concomitant]
  3. AMBIEN [Concomitant]
  4. ACYCLOVIR [Concomitant]
  5. FLUDROCORTISONE ACETATE [Concomitant]
  6. NEUPOGEN [Concomitant]
  7. LEVETIRACETAM [Concomitant]
  8. METRONIDAZOLE [Concomitant]
  9. ZOFRAN [Concomitant]

REACTIONS (1)
  - DEATH [None]
